FAERS Safety Report 16083886 (Version 1)
Quarter: 2019Q2

REPORT INFORMATION
  Report Type: Spontaneous
  Country: US (occurrence: US)
  Receive Date: 20190316
  Receipt Date: 20190316
  Transmission Date: 20190711
  Serious: No
  Sender: FDA-Public Use
  Company Number: None

PATIENT
  Age: 27 Year
  Sex: Female
  Weight: 81.9 kg

DRUGS (1)
  1. METRONIDAZOLE 500MG TABLETS [Suspect]
     Active Substance: METRONIDAZOLE
     Indication: ANTIBIOTIC PROPHYLAXIS
     Dosage: ?          QUANTITY:21 TABLET(S);?
     Route: 048
     Dates: start: 20190315, end: 20190315

REACTIONS (7)
  - Pruritus [None]
  - Vulvovaginal swelling [None]
  - Vulvovaginal pruritus [None]
  - Vaginal mucosal blistering [None]
  - Blister [None]
  - Vulvovaginal erythema [None]
  - Rash [None]

NARRATIVE: CASE EVENT DATE: 20190315
